FAERS Safety Report 7966077-1 (Version None)
Quarter: 2011Q4

REPORT INFORMATION
  Report Type: 
  Country: None (occurrence: None)
  Receive Date: 20111121
  Receipt Date: 20110930
  Transmission Date: 20120403
  Serious: No
  Sender: FDA-Public Use
  Company Number: 1000024351

PATIENT
  Age: 46 Year
  Sex: Male

DRUGS (4)
  1. ATIVAN [Concomitant]
  2. GEODON [Concomitant]
  3. VIIBRYD [Suspect]
     Indication: DEPRESSION
     Dosage: 10 MG (10 MG, 1 IN 1 D), ORAL
     Route: 048
     Dates: start: 20110928
  4. VOLTAREN [Concomitant]

REACTIONS (2)
  - RESTLESS LEGS SYNDROME [None]
  - INSOMNIA [None]
